FAERS Safety Report 4770874-3 (Version None)
Quarter: 2005Q3

REPORT INFORMATION
  Report Type: 
  Country: None (occurrence: None)
  Receive Date: 20050914
  Receipt Date: 20050831
  Transmission Date: 20060218
  Serious: Yes (Other)
  Sender: FDA-Public Use
  Company Number: S05-UKI-03313-01

PATIENT
  Sex: Female

DRUGS (3)
  1. CIPRALEX (ESCITALOPRAM) [Suspect]
     Indication: DEPRESSION
     Dosage: 10 MG PO
     Dates: start: 20050301, end: 20050819
  2. ZOLPIDEM [Concomitant]
  3. DOTHIEPIN HYDROCHLORIDE [Concomitant]

REACTIONS (1)
  - GRAND MAL CONVULSION [None]
